FAERS Safety Report 8098257-1 (Version None)
Quarter: 2012Q1

REPORT INFORMATION
  Report Type: 
  Country: None (occurrence: None)
  Receive Date: 20120128
  Receipt Date: 20110719
  Transmission Date: 20120608
  Serious: No
  Sender: FDA-Public Use
  Company Number: US-ABBOTT-11P-163-0840213-00

PATIENT
  Sex: Male
  Weight: 81.72 kg

DRUGS (8)
  1. HUMIRA [Suspect]
     Indication: RHEUMATOID ARTHRITIS
     Route: 058
     Dates: start: 20090101, end: 20101101
  2. PREDNISONE TAB [Suspect]
     Indication: PRODUCT USED FOR UNKNOWN INDICATION
     Dosage: NOT REPORTED
  3. LISINOPRIL [Concomitant]
     Indication: HYPERTENSION
     Dosage: 10 MG DAILY
  4. ASPIRIN [Concomitant]
     Indication: ANTICOAGULANT THERAPY
     Route: 048
  5. CALCIUM [Concomitant]
     Indication: OSTEOGENESIS IMPERFECTA
     Dosage: DOSE NOT REPORTED -2 TABLETS TWICE A DAY
     Route: 048
     Dates: start: 20080101
  6. METOPROLOL TARTRATE [Concomitant]
     Indication: CORONARY ARTERY DISEASE
     Dosage: 25 MG DAILY
  7. HUMIRA [Suspect]
     Route: 058
     Dates: start: 20101101
  8. ASPIRIN [Concomitant]
     Route: 048

REACTIONS (5)
  - THORACIC VERTEBRAL FRACTURE [None]
  - INCREASED TENDENCY TO BRUISE [None]
  - BACK INJURY [None]
  - DYSPNOEA [None]
  - BACK PAIN [None]
